FAERS Safety Report 12597033 (Version 1)
Quarter: 2016Q3

REPORT INFORMATION
  Report Type: Spontaneous
  Country: US (occurrence: US)
  Receive Date: 20160726
  Receipt Date: 20160726
  Transmission Date: 20161109
  Serious: Yes (Other)
  Sender: FDA-Public Use
  Company Number: US-ASTRAZENECA-2016SE79027

PATIENT
  Age: 66 Year
  Sex: Male

DRUGS (1)
  1. BRILINTA [Suspect]
     Active Substance: TICAGRELOR
     Indication: ACUTE CORONARY SYNDROME
     Dosage: 180.0MG ONCE/SINGLE ADMINISTRATION
     Route: 048
     Dates: start: 20160715

REACTIONS (5)
  - Atrioventricular block second degree [Unknown]
  - Bradycardia [Unknown]
  - Atrioventricular block complete [Unknown]
  - Nodal rhythm [Unknown]
  - Syncope [Unknown]
